FAERS Safety Report 19245036 (Version 1)
Quarter: 2021Q2

REPORT INFORMATION
  Report Type: Spontaneous
  Country: ZA (occurrence: ZA)
  Receive Date: 20210511
  Receipt Date: 20210511
  Transmission Date: 20210717
  Serious: Yes (Other)
  Sender: FDA-Public Use
  Company Number: ZA-SA-2021SA145954

PATIENT
  Sex: Female

DRUGS (2)
  1. LEFLUNOMIDE. [Suspect]
     Active Substance: LEFLUNOMIDE
     Indication: JUVENILE IDIOPATHIC ARTHRITIS
  2. ENBREL [Suspect]
     Active Substance: ETANERCEPT
     Route: 058

REACTIONS (2)
  - Platelet count abnormal [Unknown]
  - Juvenile idiopathic arthritis [Unknown]
